FAERS Safety Report 8772350 (Version 1)
Quarter: 2012Q4

REPORT INFORMATION
  Report Type: 
  Country: US (occurrence: US)
  Receive Date: 20120906
  Receipt Date: 20120906
  Transmission Date: 20130627
  Serious: Yes (Death)
  Sender: FDA-Public Use
  Company Number: US-RANBAXY-2012US-59474

PATIENT
  Age: 87 Year
  Sex: Male

DRUGS (2)
  1. OXCARBAZEPINE [Suspect]
     Indication: NEURALGIA
     Dosage: 150 mg
     Route: 065
  2. SERTRALINE [Interacting]
     Indication: DEPRESSION
     Dosage: 50 mg
     Route: 048

REACTIONS (2)
  - Drug interaction [Fatal]
  - Serotonin syndrome [Fatal]
